FAERS Safety Report 13455701 (Version 7)
Quarter: 2018Q4

REPORT INFORMATION
  Report Type: Spontaneous
  Country: US (occurrence: US)
  Receive Date: 20170419
  Receipt Date: 20181228
  Transmission Date: 20190204
  Serious: No
  Sender: FDA-Public Use
  Company Number: US-PFIZER INC-2017166246

PATIENT
  Age: 9 Year
  Sex: Male

DRUGS (4)
  1. GENOTROPIN [Suspect]
     Active Substance: SOMATROPIN
     Dosage: 1 MG, DAILY
     Dates: start: 20170205, end: 2018
  2. GENOTROPIN [Suspect]
     Active Substance: SOMATROPIN
     Indication: GROWTH HORMONE DEFICIENCY
     Dosage: UNK
  3. GENOTROPIN [Suspect]
     Active Substance: SOMATROPIN
     Indication: HYPOPITUITARISM
     Dosage: 0.6 MG, DAILY (EVERY EVENING)
     Route: 058
     Dates: start: 201702
  4. GENOTROPIN [Suspect]
     Active Substance: SOMATROPIN
     Dosage: 1 MG, 1X/DAY

REACTIONS (11)
  - Vomiting [Unknown]
  - Device issue [Unknown]
  - Abdominal pain upper [Recovered/Resolved]
  - Tachycardia [Unknown]
  - Product dose omission [Unknown]
  - Headache [Recovered/Resolved]
  - Drug ineffective [Unknown]
  - Nausea [Unknown]
  - Weight decreased [Unknown]
  - Palpitations [Recovering/Resolving]
  - Tremor [Recovering/Resolving]

NARRATIVE: CASE EVENT DATE: 2017
